FAERS Safety Report 8614009-5 (Version None)
Quarter: 2012Q3

REPORT INFORMATION
  Report Type: 
  Country: None (occurrence: None)
  Receive Date: 20120823
  Receipt Date: 20120817
  Transmission Date: 20120928
  Serious: No
  Sender: FDA-Public Use
  Company Number: US-PFIZER INC-2012202489

PATIENT
  Age: 48 Year
  Sex: Male
  Weight: 127 kg

DRUGS (6)
  1. PRISTIQ [Suspect]
     Indication: BIPOLAR DISORDER
  2. TOPROL-XL [Suspect]
     Indication: HYPERTENSION
     Dosage: 100 MG, DAILY
     Dates: start: 20070101
  3. PRISTIQ [Suspect]
     Indication: DEPRESSION
     Dosage: 50 MG, DAILY
     Dates: start: 20090101
  4. TOPROL-XL [Suspect]
     Indication: TREMOR
  5. ABILIFY [Concomitant]
     Indication: DEPRESSION
  6. ABILIFY [Concomitant]
     Indication: MANIA
     Dosage: 20 MG, DAILY
     Dates: start: 20090101

REACTIONS (6)
  - ANXIETY [None]
  - INSOMNIA [None]
  - TREMOR [None]
  - WEIGHT DECREASED [None]
  - BLOOD CHOLESTEROL INCREASED [None]
  - BLOOD TRIGLYCERIDES INCREASED [None]
